FAERS Safety Report 20974095 (Version 1)
Quarter: 2022Q2

REPORT INFORMATION
  Report Type: Report from Study
  Country: IT (occurrence: IT)
  Receive Date: 20220617
  Receipt Date: 20220617
  Transmission Date: 20220721
  Serious: Yes (Other)
  Sender: FDA-Public Use
  Company Number: None

PATIENT

DRUGS (12)
  1. ZONISAMIDE [Suspect]
     Active Substance: ZONISAMIDE
     Dosage: UNK, ZONEGRAN, HARD CAPSULE
  2. ZYPREXA [Suspect]
     Active Substance: OLANZAPINE
     Dosage: UNK
  3. SEROQUEL [Suspect]
     Active Substance: QUETIAPINE FUMARATE
     Dosage: UNK
  4. AMITRIPTYLINE HYDROCHLORIDE [Suspect]
     Active Substance: AMITRIPTYLINE HYDROCHLORIDE
     Dosage: UNK
  5. RIVOTRIL [Suspect]
     Active Substance: CLONAZEPAM
     Dosage: 15 MG, QD
  6. HALOPERIDOL [Suspect]
     Active Substance: HALOPERIDOL
     Dosage: 30 GTT DROPS (DROP (1/12 MILLILITRE))
     Dates: start: 20211111, end: 20220525
  7. CARDURA [Concomitant]
     Active Substance: DOXAZOSIN MESYLATE
     Dosage: UNK
  8. CELLCEPT 500 MG FILM-COATED TABLETS [Concomitant]
     Dosage: 2 DOSAGE FORM
  9. CYANOCOBALAMIN\PYRIDOXINE\THIAMINE [Concomitant]
     Active Substance: CYANOCOBALAMIN\PYRIDOXINE\THIAMINE
     Dosage: UNK
  10. TALOFEN 25 MG/ML SOLUZIONE INIETTABILE [Concomitant]
     Dosage: UNK, INJECTABLE SOLUTION
  11. TRAMADOL HYDROCHLORIDE [Concomitant]
     Active Substance: TRAMADOL HYDROCHLORIDE
     Dosage: UNK, ORAL DROP SOLUTION WITH DROPPERS
  12. ALGIX 120 MG COMPRESSE RIVESTITE CON FILM [Concomitant]
     Dosage: UNK

REACTIONS (2)
  - Dysarthria [Recovering/Resolving]
  - Speech disorder [Recovering/Resolving]

NARRATIVE: CASE EVENT DATE: 20220525
